FAERS Safety Report 7172109-3 (Version None)
Quarter: 2010Q4

REPORT INFORMATION
  Report Type: 
  Country: None (occurrence: None)
  Receive Date: 20101217
  Receipt Date: 20100201
  Transmission Date: 20110411
  Serious: No
  Sender: FDA-Public Use
  Company Number: US-AMGEN-KDL389901

PATIENT

DRUGS (3)
  1. ENBREL [Suspect]
     Indication: PSORIATIC ARTHROPATHY
     Dosage: 50 MG, QWK
  2. FLUTICASONE/SALMETEROL [Concomitant]
     Dosage: UNK UNK, UNK
  3. ALBUTEROL INHALER [Concomitant]
     Dosage: UNK UNK, PRN

REACTIONS (4)
  - BACK INJURY [None]
  - FALL [None]
  - JOINT INJURY [None]
  - PAIN [None]
